FAERS Safety Report 15538042 (Version 2)
Quarter: 2018Q4

REPORT INFORMATION
  Report Type: Spontaneous
  Country: US (occurrence: US)
  Receive Date: 20181022
  Receipt Date: 20181128
  Transmission Date: 20190205
  Serious: Yes (Other)
  Sender: FDA-Public Use
  Company Number: US-AKORN PHARMACEUTICALS-2018AKN01596

PATIENT
  Age: 22 Year
  Sex: Female

DRUGS (1)
  1. MYORISAN [Suspect]
     Active Substance: ISOTRETINOIN
     Dosage: 40 MG ^AVERAGE DAILY DOSE^
     Dates: start: 20180912, end: 20181006

REACTIONS (4)
  - Abortion induced [Recovered/Resolved]
  - Off label use [Recovered/Resolved]
  - Malaise [Unknown]
  - Exposure during pregnancy [Recovered/Resolved]

NARRATIVE: CASE EVENT DATE: 20180912
